FAERS Safety Report 5864815-5 (Version None)
Quarter: 2008Q3

REPORT INFORMATION
  Report Type: 
  Country: None (occurrence: None)
  Receive Date: 20080829
  Receipt Date: 20080721
  Transmission Date: 20090109
  Serious: No
  Sender: FDA-Public Use
  Company Number: US-ABBOTT-08P-163-0464361-00

PATIENT
  Age: 79 Year
  Sex: Male

DRUGS (3)
  1. SIMCOR [Suspect]
     Indication: BLOOD TRIGLYCERIDES INCREASED
     Dates: start: 20080625, end: 20080720
  2. SIMCOR [Suspect]
     Indication: LOW DENSITY LIPOPROTEIN INCREASED
  3. HYPERTENSION MEDICATION [Concomitant]
     Indication: HYPERTENSION

REACTIONS (2)
  - NECK PAIN [None]
  - PAIN IN EXTREMITY [None]
